FAERS Safety Report 7096563-0 (Version None)
Quarter: 2010Q4

REPORT INFORMATION
  Report Type: 
  Country: None (occurrence: None)
  Receive Date: 20101111
  Receipt Date: 20101104
  Transmission Date: 20110411
  Serious: Yes (Hospitalization)
  Sender: FDA-Public Use
  Company Number: B0680668A

PATIENT
  Sex: Male

DRUGS (8)
  1. VALTREX [Suspect]
     Indication: HERPES ZOSTER
     Dosage: 3000MG PER DAY
     Route: 048
     Dates: start: 20101008, end: 20101013
  2. CRESTOR [Concomitant]
     Dosage: 2.5MG PER DAY
     Route: 048
  3. BLOPRESS [Concomitant]
     Dosage: 8MG PER DAY
     Route: 048
  4. GASTER D [Concomitant]
     Dosage: 40MG PER DAY
     Route: 048
  5. MAGLAX [Concomitant]
     Dosage: 6IUAX PER DAY
     Route: 048
  6. BAKTAR [Concomitant]
     Dosage: 1IUAX PER DAY
     Route: 048
  7. PYRINAZIN [Concomitant]
     Route: 048
  8. CARTEOLOL HYDROCHLORIDE [Concomitant]
     Dosage: 10MG PER DAY
     Route: 048

REACTIONS (2)
  - BLOOD ALBUMIN DECREASED [None]
  - RENAL FAILURE ACUTE [None]
